FAERS Safety Report 9001239 (Version 1)
Quarter: 2013Q1

REPORT INFORMATION
  Report Type: Spontaneous
  Country: US (occurrence: None)
  Receive Date: 20130102
  Receipt Date: 20130102
  Transmission Date: 20140127
  Serious: No
  Sender: FDA-Public Use
  Company Number: None

PATIENT
  Age: 88 Year
  Sex: Male
  Weight: 74.1 kg

DRUGS (1)
  1. WARFARIN [Suspect]
     Indication: ATRIAL FIBRILLATION
     Dosage: 2.5 MG UD PO
     Route: 048
     Dates: start: 20120302, end: 20120407

REACTIONS (3)
  - Gastrointestinal erosion [None]
  - Haemorrhage [None]
  - International normalised ratio increased [None]
